FAERS Safety Report 5012921-X (Version None)
Quarter: 2006Q2

REPORT INFORMATION
  Report Type: 
  Country: None (occurrence: None)
  Receive Date: 20060525
  Receipt Date: 20060525
  Transmission Date: 20061013
  Serious: Yes (Other)
  Sender: FDA-Public Use
  Company Number: None

PATIENT
  Age: 44 Year
  Sex: Male
  Weight: 90.2658 kg

DRUGS (1)
  1. ZONEGRAN [Suspect]
     Indication: CONVULSION
     Dosage: 300MG DAILY PO
     Route: 048
     Dates: start: 20050716, end: 20060322

REACTIONS (2)
  - RENAL FAILURE ACUTE [None]
  - RENAL PAPILLARY NECROSIS [None]
